FAERS Safety Report 9641179 (Version 2)
Quarter: 2013Q4

REPORT INFORMATION
  Report Type: Report from Study
  Country: IT (occurrence: IT)
  Receive Date: 20131023
  Receipt Date: 20131023
  Transmission Date: 20140711
  Serious: Yes (Death, Hospitalization, Disabling)
  Sender: FDA-Public Use
  Company Number: IT-TAKEDA-TPA2012A09450

PATIENT
  Age: 59 Year
  Sex: Male
  Weight: 76 kg

DRUGS (13)
  1. BLINDED ALLOPURINOL [Suspect]
     Indication: TUMOUR LYSIS SYNDROME
     Dosage: 80 MG, QD
     Route: 048
     Dates: start: 20121106, end: 20121112
  2. BLINDED FEBUXOSTAT [Suspect]
     Indication: TUMOUR LYSIS SYNDROME
     Dosage: 80 MG, QD
     Route: 048
     Dates: start: 20121106, end: 20121112
  3. LANSOX [Concomitant]
     Indication: GASTRITIS PROPHYLAXIS
     Dosage: 30 MG, QD
     Route: 048
     Dates: start: 20120309
  4. TALAVIR [Concomitant]
     Indication: INFECTION PROPHYLAXIS
     Dosage: 500 MG, QD
     Route: 048
     Dates: start: 20120309
  5. MYCOSTATIN [Concomitant]
     Route: 048
     Dates: start: 20121106, end: 20121109
  6. BACTRIM [Concomitant]
     Dosage: UNK
     Route: 048
     Dates: start: 20120309
  7. METFORMINA                         /00082701/ [Concomitant]
     Indication: DIABETES MELLITUS
     Dosage: 1000 MG, QD
     Route: 048
     Dates: start: 20120813
  8. LEVOXACIN [Concomitant]
     Indication: INFECTION PROPHYLAXIS
     Dosage: 500 MG, QD
     Route: 048
     Dates: start: 20121108
  9. ZOFRAN                             /00955301/ [Concomitant]
     Indication: PROPHYLAXIS OF NAUSEA AND VOMITING
     Dosage: UNK
     Route: 042
     Dates: start: 20121108, end: 20121111
  10. LASIX                              /00032601/ [Concomitant]
     Indication: DIURETIC THERAPY
     Route: 042
     Dates: start: 20121106, end: 20121111
  11. LEVOPRAID [Concomitant]
     Indication: PROPHYLAXIS OF NAUSEA AND VOMITING
     Dosage: 50 MG, AS REQUIRED
     Route: 048
     Dates: start: 20121111, end: 20121111
  12. ZARZIO [Concomitant]
     Indication: NEUTROPENIA
     Route: 030
     Dates: start: 20121112
  13. ACYCLOVIR                          /00587301/ [Concomitant]
     Indication: ANTIVIRAL PROPHYLAXIS
     Dosage: 1 G, UNK
     Route: 048
     Dates: start: 201211

REACTIONS (1)
  - Cerebral ischaemia [Not Recovered/Not Resolved]
